FAERS Safety Report 11412626 (Version 1)
Quarter: 2015Q3

REPORT INFORMATION
  Report Type: Spontaneous
  Country: US (occurrence: US)
  Receive Date: 20150821
  Receipt Date: 20150821
  Transmission Date: 20151125
  Serious: No
  Sender: FDA-Public Use
  Company Number: US-ELI_LILLY_AND_COMPANY-US201105005088

PATIENT
  Age: 33 Year
  Sex: Female
  Weight: 68.03 kg

DRUGS (5)
  1. IRON COMPLEX                       /00023501/ [Concomitant]
     Dosage: UNK
  2. PRENATAL VITAMINS                  /01549301/ [Concomitant]
     Active Substance: VITAMINS
     Dosage: UNK
  3. CALCIUM W/MAGNESIUM/VITAMIN D [Concomitant]
     Dosage: UNK
  4. HUMULIN N [Suspect]
     Active Substance: INSULIN HUMAN
     Dosage: 37 U, EACH EVENING
  5. HUMULIN N [Suspect]
     Active Substance: INSULIN HUMAN
     Indication: LATENT AUTOIMMUNE DIABETES IN ADULTS
     Dosage: 33 U, QD

REACTIONS (4)
  - Exposure during pregnancy [Not Recovered/Not Resolved]
  - Drug ineffective [Recovered/Resolved]
  - Hypoglycaemia [Unknown]
  - Blood glucose increased [Recovered/Resolved]

NARRATIVE: CASE EVENT DATE: 20110518
